FAERS Safety Report 17637165 (Version 1)
Quarter: 2020Q2

REPORT INFORMATION
  Report Type: Spontaneous
  Country: GR (occurrence: GR)
  Receive Date: 20200407
  Receipt Date: 20200407
  Transmission Date: 20200713
  Serious: Yes (Hospitalization)
  Sender: FDA-Public Use
  Company Number: GR-TEVA-2020-GR-1220781

PATIENT
  Age: 4 Year
  Sex: Female

DRUGS (1)
  1. CARBOPLATIN. [Suspect]
     Active Substance: CARBOPLATIN
     Dosage: 360MG IN TOTAL
     Route: 042
     Dates: start: 20200316, end: 20200316

REACTIONS (2)
  - Eyelid oedema [Recovering/Resolving]
  - Erythema [Recovering/Resolving]
